FAERS Safety Report 16597140 (Version 1)
Quarter: 2019Q3

REPORT INFORMATION
  Report Type: Spontaneous
  Country: TN (occurrence: TN)
  Receive Date: 20190719
  Receipt Date: 20190719
  Transmission Date: 20191004
  Serious: Yes (Hospitalization)
  Sender: FDA-Public Use
  Company Number: TN-MYLANLABS-2019M1066896

PATIENT
  Age: 53 Year
  Sex: Male

DRUGS (3)
  1. MESALAMINE. [Concomitant]
     Active Substance: MESALAMINE
     Indication: COLITIS ULCERATIVE
     Route: 065
  2. PREDNISONE. [Suspect]
     Active Substance: PREDNISONE
     Indication: COLITIS ULCERATIVE
     Dosage: 1 MILLIGRAM/KILOGRAM, QD
     Route: 042
  3. AZATHIOPRINE. [Suspect]
     Active Substance: AZATHIOPRINE
     Indication: COLITIS ULCERATIVE
     Route: 065

REACTIONS (2)
  - Kaposi^s sarcoma [Recovered/Resolved]
  - Human herpesvirus 8 infection [Recovered/Resolved]
